FAERS Safety Report 25170068 (Version 4)
Quarter: 2025Q2

REPORT INFORMATION
  Report Type: Report from Study
  Country: US (occurrence: US)
  Receive Date: 20250407
  Receipt Date: 20250623
  Transmission Date: 20250716
  Serious: Yes (Other)
  Sender: ABBVIE
  Company Number: US-ABBVIE-6207087

PATIENT
  Age: 79 Year
  Sex: Male

DRUGS (1)
  1. HUMIRA [Suspect]
     Active Substance: ADALIMUMAB
     Indication: Rheumatoid arthritis
     Route: 058
     Dates: start: 20241024

REACTIONS (5)
  - Catheterisation cardiac [Not Recovered/Not Resolved]
  - Carotid artery stent insertion [Recovering/Resolving]
  - Cardiac procedure complication [Recovering/Resolving]
  - Drug ineffective [Not Recovered/Not Resolved]
  - Anaemia [Unknown]

NARRATIVE: CASE EVENT DATE: 20250321
